FAERS Safety Report 9981969 (Version 1)
Quarter: 2014Q1

REPORT INFORMATION
  Report Type: Spontaneous
  Country: US (occurrence: None)
  Receive Date: 20140306
  Receipt Date: 20140306
  Transmission Date: 20141002
  Serious: No
  Sender: FDA-Public Use
  Company Number: None

PATIENT
  Age: 63 Year
  Sex: Female

DRUGS (5)
  1. VENLAFXINE HCL ER CAPS 75MG TEVA [Suspect]
     Indication: DEPRESSION
     Dosage: 3 CAPSULES, QD, ORAL
     Route: 048
     Dates: start: 19010304, end: 20110615
  2. ENALAPRIL [Concomitant]
  3. EXEMESTANE [Concomitant]
  4. LANSOPROZOLE [Concomitant]
  5. ADVAIR [Concomitant]

REACTIONS (9)
  - Irritability [None]
  - Anxiety [None]
  - Restlessness [None]
  - Disturbance in attention [None]
  - Agitation [None]
  - Hostility [None]
  - Depression [None]
  - Product substitution issue [None]
  - Therapeutic response unexpected with drug substitution [None]
